FAERS Safety Report 16499769 (Version 1)
Quarter: 2019Q3

REPORT INFORMATION
  Report Type: Report from Study
  Country: PL (occurrence: PL)
  Receive Date: 20190701
  Receipt Date: 20190701
  Transmission Date: 20191004
  Serious: Yes (Hospitalization)
  Sender: FDA-Public Use
  Company Number: PL-ACCORD-135447

PATIENT
  Sex: Female

DRUGS (1)
  1. MYCOPHENOLIC ACID. [Suspect]
     Active Substance: MYCOPHENOLIC ACID
     Indication: UVEITIS
     Dosage: AVERAGE BASELINE?DOSE OF MMF WAS 1763 MG

REACTIONS (3)
  - Loss of consciousness [Unknown]
  - Haematoma [Unknown]
  - Ecchymosis [Unknown]
